FAERS Safety Report 7515102-0 (Version None)
Quarter: 2011Q2

REPORT INFORMATION
  Report Type: 
  Country: None (occurrence: None)
  Receive Date: 20110601
  Receipt Date: 20100108
  Transmission Date: 20111010
  Serious: Yes (Death, Other)
  Sender: FDA-Public Use
  Company Number: US-BAYER-201010334NA

PATIENT
  Age: 81 Year
  Sex: Female
  Weight: 59 kg

DRUGS (22)
  1. TRASYLOL [Suspect]
     Indication: CORONARY ARTERY BYPASS
     Dosage: 1ML INITIAL TEST DOSE, 200CC LOADING DOSE FOLLOWED BY 50ML PER HOUR DRIP
     Route: 042
     Dates: start: 20070423, end: 20070423
  2. SPIRONOLACTONE [Concomitant]
     Dosage: 25 MG, QD
     Route: 048
     Dates: start: 20070419
  3. ANECTINE [Concomitant]
     Dosage: 120 MG, UNK
     Route: 042
     Dates: start: 20070423
  4. PAVULON [Concomitant]
     Dosage: 10 MG, UNK
     Route: 042
     Dates: start: 20070423
  5. AVELOX [Concomitant]
     Dosage: 400 MG, QD, LONG TERM
     Route: 048
  6. COUMADIN [Concomitant]
     Dosage: 5 MG, QD, LONG TERM
  7. MEPHYTON [Concomitant]
     Dosage: 5 MG, QD, LONG TERM
     Route: 048
  8. PROTAMINE SULFATE [Concomitant]
     Dosage: 440 MG, UNK
     Route: 042
     Dates: start: 20070423
  9. FENTANYL [Concomitant]
     Dosage: 350 MCG
     Route: 042
     Dates: start: 20070423
  10. TRASYLOL [Suspect]
     Indication: MITRAL VALVE REPAIR
  11. TRASYLOL [Suspect]
     Indication: TRICUSPID VALVE REPAIR
  12. VANCOMYCIN [Concomitant]
     Dosage: 500 MG, UNK
     Route: 042
     Dates: start: 20070423
  13. HEPARIN [Concomitant]
     Dosage: 21,000U
     Route: 042
     Dates: start: 20070423
  14. DOBUTAMINE HYDROCHLORIDE [Concomitant]
     Dosage: UNK
     Route: 042
     Dates: start: 20070423
  15. COREG [Concomitant]
     Dosage: 3.125 MG, QD, LONG TERM
  16. LISINOPRIL [Concomitant]
     Dosage: 10 MG, QD
     Route: 048
     Dates: start: 20070419
  17. INSULIN [INSULIN] [Concomitant]
     Dosage: TITRATED
     Route: 042
     Dates: start: 20070423
  18. METRONIDAZOLE [Concomitant]
     Dosage: 250 MG, UNK
     Route: 048
     Dates: start: 20070316
  19. RED BLOOD CELLS [Concomitant]
     Dosage: 2 U, UNK
     Dates: start: 20070423
  20. LOPRESSOR [Concomitant]
     Dosage: 50 MG, QD, LONG TERM
     Route: 048
  21. LASIX [Concomitant]
     Indication: CARDIAC FAILURE CONGESTIVE
     Dosage: 20 MG, QD, LONG TERM
     Route: 048
  22. VANCOMYCIN [Concomitant]
     Dosage: 0.5 G, UNK
     Route: 042
     Dates: start: 20070421

REACTIONS (14)
  - EMOTIONAL DISTRESS [None]
  - PAIN [None]
  - RENAL FAILURE [None]
  - STRESS [None]
  - RENAL INJURY [None]
  - ANXIETY [None]
  - MYOCARDIAL INFARCTION [None]
  - RENAL FAILURE ACUTE [None]
  - INJURY [None]
  - FEAR [None]
  - RENAL IMPAIRMENT [None]
  - UNEVALUABLE EVENT [None]
  - ANHEDONIA [None]
  - DEATH [None]
